FAERS Safety Report 23406062 (Version 1)
Quarter: 2024Q1

REPORT INFORMATION
  Report Type: Report from Study
  Country: CO (occurrence: CO)
  Receive Date: 20240116
  Receipt Date: 20240116
  Transmission Date: 20240410
  Serious: Yes (Life-Threatening, Hospitalization, Other)
  Sender: FDA-Public Use
  Company Number: CO-ABBVIE-5589249

PATIENT
  Sex: Female
  Weight: 1.814 kg

DRUGS (1)
  1. HUMIRA [Suspect]
     Active Substance: ADALIMUMAB
     Indication: Maternal exposure timing unspecified

REACTIONS (3)
  - Umbilical cord around neck [Recovered/Resolved]
  - Low birth weight baby [Recovering/Resolving]
  - Foetal exposure during pregnancy [Unknown]
